FAERS Safety Report 8207210-6 (Version None)
Quarter: 2012Q1

REPORT INFORMATION
  Report Type: 
  Country: None (occurrence: None)
  Receive Date: 20120314
  Receipt Date: 20120306
  Transmission Date: 20120608
  Serious: No
  Sender: FDA-Public Use
  Company Number: US-PFIZER INC-2012045690

PATIENT
  Age: 40 Year
  Sex: Female

DRUGS (2)
  1. LO/OVRAL-28 [Suspect]
     Indication: OFF LABEL USE
  2. LO/OVRAL-28 [Suspect]
     Indication: ENDOMETRIOSIS

REACTIONS (5)
  - HORMONE LEVEL ABNORMAL [None]
  - LOSS OF LIBIDO [None]
  - MOOD SWINGS [None]
  - RASH [None]
  - PRODUCT QUALITY ISSUE [None]
